FAERS Safety Report 7659168-6 (Version None)
Quarter: 2011Q3

REPORT INFORMATION
  Report Type: 
  Country: None (occurrence: None)
  Receive Date: 20110805
  Receipt Date: 20110727
  Transmission Date: 20111222
  Serious: Yes (Hospitalization)
  Sender: FDA-Public Use
  Company Number: US-VIIV HEALTHCARE LIMITED-B0737100A

PATIENT
  Age: 32 Year
  Sex: Female
  Weight: 109.1 kg

DRUGS (4)
  1. RALTEGRAVIR [Concomitant]
     Indication: HIV INFECTION
     Dosage: 400MG TWICE PER DAY
     Dates: start: 20110216
  2. DARUNAVIR [Concomitant]
     Indication: HIV INFECTION
     Dosage: 600MG TWICE PER DAY
     Dates: start: 20110216
  3. RITONAVIR [Concomitant]
     Indication: HIV INFECTION
     Dosage: 100MG TWICE PER DAY
     Dates: start: 20110216
  4. MARAVIROC [Suspect]
     Indication: HIV INFECTION
     Dosage: 150MG TWICE PER DAY
     Route: 048
     Dates: start: 20110216

REACTIONS (7)
  - VAGINAL OPERATION [None]
  - VAGINAL CANCER [None]
  - ANORECTAL DISORDER [None]
  - CERVIX CARCINOMA STAGE 0 [None]
  - VULVAL CANCER [None]
  - HYSTERECTOMY [None]
  - ANAL CANCER STAGE 0 [None]
